FAERS Safety Report 6065264-X (Version None)
Quarter: 2009Q1

REPORT INFORMATION
  Report Type: 
  Country: None (occurrence: None)
  Receive Date: 20090204
  Receipt Date: 20090119
  Transmission Date: 20090719
  Serious: Yes (Hospitalization)
  Sender: FDA-Public Use
  Company Number: FR-ROCHE-611708

PATIENT
  Sex: Female

DRUGS (9)
  1. ROCEPHIN [Suspect]
     Indication: DYSPNOEA
     Dosage: DOSEFORM: INJECTABLE SOLUTION.
     Route: 030
     Dates: start: 20081027, end: 20081102
  2. COLCHICINE [Suspect]
     Indication: DRUG USE FOR UNKNOWN INDICATION
     Route: 048
     Dates: start: 20080924, end: 20081112
  3. ZYLORIC [Suspect]
     Indication: DRUG USE FOR UNKNOWN INDICATION
     Route: 048
     Dates: start: 20080924, end: 20081112
  4. GAVISCON [Concomitant]
  5. TRANXENE [Concomitant]
  6. LASILIX [Concomitant]
  7. VASTAREL [Concomitant]
  8. ZOLOFT [Concomitant]
  9. REMINYL [Concomitant]

REACTIONS (7)
  - DRUG RASH WITH EOSINOPHILIA AND SYSTEMIC SYMPTOMS [None]
  - EOSINOPHILIA [None]
  - FACE OEDEMA [None]
  - GAMMA-GLUTAMYLTRANSFERASE INCREASED [None]
  - OEDEMA PERIPHERAL [None]
  - PYREXIA [None]
  - RASH MACULO-PAPULAR [None]
